FAERS Safety Report 11682938 (Version 4)
Quarter: 2021Q1

REPORT INFORMATION
  Report Type: Spontaneous
  Country: US (occurrence: US)
  Receive Date: 20151029
  Receipt Date: 20210217
  Transmission Date: 20210419
  Serious: No
  Sender: FDA-Public Use
  Company Number: US-009507513-1510USA012626

PATIENT
  Age: 58 Year
  Sex: Male

DRUGS (2)
  1. DULERA [Suspect]
     Active Substance: FORMOTEROL FUMARATE DIHYDRATE\MOMETASONE FUROATE
     Dosage: 200/5 MCG, UNK
     Route: 055
  2. DULERA [Suspect]
     Active Substance: FORMOTEROL FUMARATE DIHYDRATE\MOMETASONE FUROATE
     Dosage: UNK
     Route: 055
     Dates: start: 202011

REACTIONS (6)
  - Wrong technique in product usage process [Unknown]
  - Poor quality product administered [Unknown]
  - Product quality issue [Unknown]
  - No adverse event [Unknown]
  - Product dose omission issue [Unknown]
  - Product container issue [Unknown]

NARRATIVE: CASE EVENT DATE: 202011
